FAERS Safety Report 9719641 (Version 2)
Quarter: 2013Q4

REPORT INFORMATION
  Report Type: Spontaneous
  Country: CL (occurrence: CL)
  Receive Date: 20131128
  Receipt Date: 20131210
  Transmission Date: 20140711
  Serious: Yes (Other)
  Sender: FDA-Public Use
  Company Number: CL-AMGEN-CHLSP2013083709

PATIENT
  Age: 18 Year
  Sex: Female

DRUGS (4)
  1. ENBREL [Suspect]
     Indication: PRODUCT USED FOR UNKNOWN INDICATION
     Dosage: UNK
     Route: 065
     Dates: start: 201211
  2. METHOTREXATE [Concomitant]
     Dosage: UNK
  3. FOLIC ACID [Concomitant]
     Dosage: UNK
  4. CELEBRA [Concomitant]
     Dosage: UNK

REACTIONS (1)
  - Injection site haemorrhage [Recovered/Resolved]
